FAERS Safety Report 8002617-4 (Version None)
Quarter: 2011Q4

REPORT INFORMATION
  Report Type: 
  Country: None (occurrence: None)
  Receive Date: 20111222
  Receipt Date: 20111213
  Transmission Date: 20120403
  Serious: Yes (Other)
  Sender: FDA-Public Use
  Company Number: US-GLAXOSMITHKLINE-B0706889A

PATIENT
  Sex: Female
  Weight: 112 kg

DRUGS (11)
  1. AVANDAMET [Suspect]
     Indication: DIABETES MELLITUS
     Route: 048
     Dates: end: 20050401
  2. LOPRESSOR [Concomitant]
  3. PRAVASTATIN [Concomitant]
  4. ZANTAC [Concomitant]
  5. AVANDIA [Suspect]
     Indication: DIABETES MELLITUS
     Dosage: 2MG TWICE PER DAY
     Route: 048
     Dates: start: 20050401
  6. GLIMEPIRIDE [Concomitant]
  7. INSULIN [Concomitant]
  8. CITALOPRAM HYDROBROMIDE [Concomitant]
  9. METFORMIN HCL [Concomitant]
  10. AMLODIPINE [Concomitant]
  11. EVISTA [Concomitant]

REACTIONS (4)
  - ANGINA PECTORIS [None]
  - CARDIAC PACEMAKER INSERTION [None]
  - TRANSIENT ISCHAEMIC ATTACK [None]
  - ATRIAL FIBRILLATION [None]
